FAERS Safety Report 16926135 (Version 1)
Quarter: 2019Q4

REPORT INFORMATION
  Report Type: Spontaneous
  Country: NL (occurrence: NL)
  Receive Date: 20191016
  Receipt Date: 20191016
  Transmission Date: 20200122
  Serious: Yes (Hospitalization, Other)
  Sender: FDA-Public Use
  Company Number: NL-ALEMBIC PHARMACUETICALS LIMITED-2019SCAL000754

PATIENT

DRUGS (5)
  1. HYDROCHLOROTHIAZIDE. [Interacting]
     Active Substance: HYDROCHLOROTHIAZIDE
     Dosage: 2 MG/ KG/DAY
     Route: 048
  2. HYDROCHLOROTHIAZIDE. [Suspect]
     Active Substance: HYDROCHLOROTHIAZIDE
     Indication: HYPERINSULINISM
     Dosage: 3 MG/ KG/DAY
     Route: 048
  3. DIAZOXIDE [Interacting]
     Active Substance: DIAZOXIDE
     Indication: HYPERINSULINISM
     Dosage: 10 MG/ KG/DAY
     Route: 048
  4. DIAZOXIDE [Interacting]
     Active Substance: DIAZOXIDE
     Dosage: 10 MG/KG/DAY AFTER 8 DAYS
     Route: 048
  5. DIAZOXIDE [Interacting]
     Active Substance: DIAZOXIDE
     Dosage: 5 MG/ KG/DAY
     Route: 048

REACTIONS (6)
  - Epistaxis [Unknown]
  - Thrombocytopenia [Recovered/Resolved]
  - Haematemesis [Unknown]
  - Petechiae [Unknown]
  - Drug interaction [Unknown]
  - Rectal haemorrhage [Unknown]
